FAERS Safety Report 5113422-0 (Version None)
Quarter: 2006Q3

REPORT INFORMATION
  Report Type: 
  Country: None (occurrence: None)
  Receive Date: 20060921
  Receipt Date: 20060921
  Transmission Date: 20061208
  Serious: Yes (Life-Threatening)
  Sender: FDA-Public Use
  Company Number: None

PATIENT
  Age: 3 Year
  Sex: Female
  Weight: 15 kg

DRUGS (4)
  1. ONCASPAR [Suspect]
     Indication: ACUTE LYMPHOCYTIC LEUKAEMIA
     Dosage: 1625 INTERNATIONAL UNITS   ONCE   IM
     Route: 030
     Dates: start: 20060529, end: 20060529
  2. ONCASPAR [Suspect]
     Indication: ACUTE LYMPHOCYTIC LEUKAEMIA
     Dosage: 1625 INTERNATIONAL UNITS   ONCE   IM
     Route: 030
     Dates: start: 20060724, end: 20060724
  3. METHOTREXATE [Concomitant]
  4. VINCRISTINE [Concomitant]

REACTIONS (1)
  - URTICARIA GENERALISED [None]
